FAERS Safety Report 13540332 (Version 3)
Quarter: 2017Q2

REPORT INFORMATION
  Report Type: Spontaneous
  Country: US (occurrence: US)
  Receive Date: 20170512
  Receipt Date: 20170623
  Transmission Date: 20170830
  Serious: Yes (Other)
  Sender: FDA-Public Use
  Company Number: US-SAOL THERAPEUTICS-2017SAO00827

PATIENT
  Age: 57 Year
  Sex: Male
  Weight: 77.98 kg

DRUGS (16)
  1. LINZESS [Concomitant]
     Active Substance: LINACLOTIDE
     Dosage: 1 CAPSULES, 1X/DAY
     Route: 048
  2. BACLOFEN. [Suspect]
     Active Substance: BACLOFEN
     Indication: MUSCLE SPASTICITY
     Dosage: 165 ?G, \DAY
     Route: 037
     Dates: start: 201605
  3. IBUPROFEN. [Concomitant]
     Active Substance: IBUPROFEN
     Dosage: 1 TABLETS, 3X/DAY
     Route: 048
  4. LANSOPRAZOLE. [Concomitant]
     Active Substance: LANSOPRAZOLE
     Dosage: 30 MG, 2X/DAY
     Route: 048
     Dates: start: 20161110
  5. BACTRIM [Concomitant]
     Active Substance: SULFAMETHOXAZOLE\TRIMETHOPRIM
     Dosage: 1 TABLETS, 1X/DAY
     Route: 048
  6. BACLOFEN. [Concomitant]
     Active Substance: BACLOFEN
     Dosage: 20 MG, 4X/DAY
     Route: 048
  7. MIRALAX [Concomitant]
     Active Substance: POLYETHYLENE GLYCOL 3350
     Dosage: 0.5 TABLETS, AS NEEDED
     Route: 048
     Dates: start: 20160609
  8. ZANTAC [Concomitant]
     Active Substance: RANITIDINE HYDROCHLORIDE
     Dosage: 150 MG, 1X/DAY
     Route: 048
  9. ZOLPIDEM TARTATE ER [Concomitant]
     Dosage: 12.5 MG, 1X/DAY
  10. BACLOFEN. [Suspect]
     Active Substance: BACLOFEN
     Dosage: 149.79 ?G, UNK
  11. UNSPECIFIED VITAMIN D3 [Concomitant]
     Dosage: 2000 U, 1X/DAY
     Route: 048
     Dates: start: 20170104
  12. TRAMADOL HYDROCHLORIDE. [Concomitant]
     Active Substance: TRAMADOL HYDROCHLORIDE
     Dosage: 2 TABLETS, 4X/DAY
     Route: 048
  13. TIZNANIIDINE HCL [Concomitant]
     Dosage: 4 MG, 3X/DAY
  14. MUCINEX [Concomitant]
     Active Substance: GUAIFENESIN
     Dosage: 1 TABLETS, 2X/DAY
     Route: 048
     Dates: start: 20161110
  15. DIAZEPAM. [Concomitant]
     Active Substance: DIAZEPAM
     Dosage: 1 TABLETS, 3X/DAY
     Route: 048
  16. ALIVE MENS ENERGY [Concomitant]
     Dosage: 1 TABLETS, AS NEEDED
     Route: 048

REACTIONS (14)
  - Chest pain [Unknown]
  - Muscle spasticity [Recovered/Resolved]
  - Constipation [Unknown]
  - Influenza [Unknown]
  - Muscle spasms [Unknown]
  - Intervertebral disc degeneration [Unknown]
  - Pain in extremity [Unknown]
  - Decubitus ulcer [Unknown]
  - Muscular weakness [Unknown]
  - Neuralgia [Recovered/Resolved]
  - Urinary tract infection [Recovered/Resolved]
  - Device malfunction [Recovered/Resolved]
  - Cystitis [Unknown]
  - Faecaloma [Unknown]

NARRATIVE: CASE EVENT DATE: 201605
